FAERS Safety Report 8305605-3 (Version None)
Quarter: 2012Q2

REPORT INFORMATION
  Report Type: 
  Country: None (occurrence: None)
  Receive Date: 20120423
  Receipt Date: 20120417
  Transmission Date: 20120825
  Serious: Yes (Hospitalization)
  Sender: FDA-Public Use
  Company Number: PHFR2012GB002283

PATIENT
  Sex: Female

DRUGS (1)
  1. CLOZARIL [Suspect]
     Indication: SCHIZOPHRENIA
     Dosage: UNK
     Dates: start: 20110823, end: 20120412

REACTIONS (4)
  - CARDIAC ARREST [None]
  - OVERDOSE [None]
  - PNEUMOTHORAX [None]
  - DEPRESSED LEVEL OF CONSCIOUSNESS [None]
